FAERS Safety Report 13939441 (Version 1)
Quarter: 2017Q3

REPORT INFORMATION
  Report Type: Spontaneous
  Country: IE (occurrence: IE)
  Receive Date: 20170906
  Receipt Date: 20170906
  Transmission Date: 20171127
  Serious: Yes (Hospitalization, Other)
  Sender: FDA-Public Use
  Company Number: IE-ALEMBIC PHARMACUETICALS LIMITED-2017SCAL000707

PATIENT

DRUGS (6)
  1. PARACETAMOL [Concomitant]
     Active Substance: ACETAMINOPHEN
     Indication: PRODUCT USED FOR UNKNOWN INDICATION
     Dosage: UNK
  2. SOLIFENACIN [Concomitant]
     Active Substance: SOLIFENACIN
     Indication: PRODUCT USED FOR UNKNOWN INDICATION
     Dosage: UNK
  3. DEXKETOPROFEN [Suspect]
     Active Substance: DEXKETOPROFEN
     Indication: PRODUCT USED FOR UNKNOWN INDICATION
     Dosage: UNK
  4. CELECOXIB. [Suspect]
     Active Substance: CELECOXIB
     Indication: PRODUCT USED FOR UNKNOWN INDICATION
     Dosage: UNK
  5. NITROFURANTOIN. [Suspect]
     Active Substance: NITROFURANTOIN
     Indication: PROPHYLAXIS URINARY TRACT INFECTION
     Dosage: UNK
     Dates: start: 2011
  6. NAPROXEN. [Suspect]
     Active Substance: NAPROXEN
     Indication: PRODUCT USED FOR UNKNOWN INDICATION
     Dosage: UNK

REACTIONS (18)
  - Hepatic cirrhosis [Unknown]
  - Blood albumin abnormal [Recovering/Resolving]
  - Drug-induced liver injury [Unknown]
  - Idiosyncratic drug reaction [Unknown]
  - Cholestasis [Unknown]
  - Ascites [Unknown]
  - Liver function test abnormal [Unknown]
  - Alanine aminotransferase abnormal [Recovering/Resolving]
  - Cholelithiasis [Unknown]
  - Blood bilirubin abnormal [Recovering/Resolving]
  - Gamma-glutamyltransferase abnormal [Recovering/Resolving]
  - International normalised ratio abnormal [Unknown]
  - Abdominal pain upper [Unknown]
  - Blood alkaline phosphatase abnormal [Recovering/Resolving]
  - Portal hypertension [Unknown]
  - Chromaturia [Unknown]
  - Jaundice [Unknown]
  - Vomiting [Unknown]
